FAERS Safety Report 6108428-9 (Version None)
Quarter: 2009Q1

REPORT INFORMATION
  Report Type: 
  Country: None (occurrence: None)
  Receive Date: 20090309
  Receipt Date: 20090116
  Transmission Date: 20090719
  Serious: Yes (Hospitalization)
  Sender: FDA-Public Use
  Company Number: US-PFIZER INC-2007107040

PATIENT
  Sex: Male
  Weight: 106.14 kg

DRUGS (4)
  1. SUTENT [Suspect]
     Indication: METASTATIC MALIGNANT MELANOMA
     Dosage: 37.5 MG, 1X/DAY
     Route: 048
     Dates: start: 20071029, end: 20071216
  2. LIPITOR [Concomitant]
  3. STALEVO 100 [Concomitant]
  4. TRIHEXYPHENIDYL [Concomitant]

REACTIONS (1)
  - CONVULSION [None]
